FAERS Safety Report 9238459 (Version 1)
Quarter: 2013Q2

REPORT INFORMATION
  Report Type: Spontaneous
  Country: US (occurrence: None)
  Receive Date: 20130417
  Receipt Date: 20130417
  Transmission Date: 20140414
  Serious: Yes (Hospitalization)
  Sender: FDA-Public Use
  Company Number: None

PATIENT
  Age: 84 Year
  Sex: Female
  Weight: 74.03 kg

DRUGS (20)
  1. LEVOFLOXACIN [Suspect]
     Indication: URINARY TRACT INFECTION
     Route: 048
     Dates: start: 20130328, end: 20130401
  2. INSULIN GLARGINE-LANTUS- [Concomitant]
  3. INSULIN REGULAR-HUMULIN-R [Concomitant]
  4. NOVOLIN-R [Concomitant]
  5. OMEPRAZOLE [Concomitant]
  6. PRILOSEC [Concomitant]
  7. METOPROLOL TARTRATE-LOPRESSOR [Concomitant]
  8. ISOSORBIDE DINITRATE -ISORDIL [Concomitant]
  9. DOCUSATE DOSIUM -COLACE [Concomitant]
  10. POLYETHYLENE GLYCOL [Concomitant]
  11. GLYCOLAX MIRALAX [Concomitant]
  12. NITROGLYCERIN-NITROSTAT [Concomitant]
  13. ALBUTEROL HFA [Concomitant]
  14. PROAIR HFA [Concomitant]
  15. VENTOLIN HFA [Concomitant]
  16. SINGULAIR [Concomitant]
  17. LEVOTHYROXINE-SYNTHROID [Concomitant]
  18. MORPHINE [Concomitant]
  19. RUFAXIMIN-XIFAXAN [Concomitant]
  20. LACTULOSE-GENERLAC [Concomitant]

REACTIONS (9)
  - Nausea [None]
  - Vomiting [None]
  - Malaise [None]
  - Hypophagia [None]
  - Asthenia [None]
  - Dehydration [None]
  - Ocular icterus [None]
  - Yellow skin [None]
  - Hepatotoxicity [None]
